FAERS Safety Report 5059830-8 (Version None)
Quarter: 2006Q3

REPORT INFORMATION
  Report Type: 
  Country: None (occurrence: None)
  Receive Date: 20060724
  Receipt Date: 20060718
  Transmission Date: 20061208
  Serious: Yes (Other)
  Sender: FDA-Public Use
  Company Number: US-MERCK-0607USA04071

PATIENT
  Age: 50 Year
  Sex: Female

DRUGS (2)
  1. SINGULAIR [Suspect]
     Route: 048
     Dates: start: 20030701
  2. CORTICOSTEROIDS (UNSPECIFIED) [Concomitant]
     Route: 055

REACTIONS (1)
  - ALLERGIC GRANULOMATOUS ANGIITIS [None]
